FAERS Safety Report 5033914-2 (Version None)
Quarter: 2006Q2

REPORT INFORMATION
  Report Type: 
  Country: None (occurrence: None)
  Receive Date: 20060623
  Receipt Date: 20060228
  Transmission Date: 20061013
  Serious: Yes (Life-Threatening, Hospitalization, Other)
  Sender: FDA-Public Use
  Company Number: FR-AMGEN-UK170660

PATIENT
  Age: 32 Year
  Sex: Female
  Weight: 44 kg

DRUGS (6)
  1. KINERET [Suspect]
     Indication: RHEUMATOID ARTHRITIS
     Route: 058
     Dates: start: 20050701
  2. HYDROCORTISONE [Concomitant]
     Route: 065
  3. IDEOS [Concomitant]
     Route: 065
  4. DOLIPRANE [Concomitant]
     Route: 065
  5. TERCIAN (ADVENTIS PHARMA) [Concomitant]
     Route: 065
  6. ACTONEL [Concomitant]
     Route: 065

REACTIONS (4)
  - CHOLECYSTITIS ACUTE [None]
  - CLOSTRIDIAL INFECTION [None]
  - CONVULSION [None]
  - PERITONITIS [None]
